FAERS Safety Report 7751603-8 (Version None)
Quarter: 2011Q3

REPORT INFORMATION
  Report Type: 
  Country: None (occurrence: None)
  Receive Date: 20110914
  Receipt Date: 20110912
  Transmission Date: 20111222
  Serious: Yes (Death, Hospitalization)
  Sender: FDA-Public Use
  Company Number: PHEH2011US03953

PATIENT
  Sex: Female
  Weight: 55.329 kg

DRUGS (3)
  1. CARBOPLATIN [Concomitant]
  2. AVASTIN [Concomitant]
  3. ZOMETA [Suspect]
     Indication: METASTASES TO BONE
     Dates: start: 20110309

REACTIONS (12)
  - AGITATION [None]
  - URINARY TRACT INFECTION [None]
  - MENTAL STATUS CHANGES [None]
  - APHASIA [None]
  - ASTHENIA [None]
  - DEATH [None]
  - CEREBROVASCULAR ACCIDENT [None]
  - ANXIETY [None]
  - VISUAL IMPAIRMENT [None]
  - PRODUCTIVE COUGH [None]
  - ANAEMIA [None]
  - THROMBOCYTOPENIA [None]
